FAERS Safety Report 12950114 (Version 1)
Quarter: 2016Q4

REPORT INFORMATION
  Report Type: Spontaneous
  Country: US (occurrence: US)
  Receive Date: 20161116
  Receipt Date: 20161116
  Transmission Date: 20170207
  Serious: Yes (Death, Hospitalization, Disabling)
  Sender: FDA-Public Use
  Company Number: US-STANDARD HOMEOPATHIC COMPANY-1059628

PATIENT
  Age: 69 Year
  Sex: Female

DRUGS (1)
  1. INSOMNIA RELIEF [Suspect]
     Active Substance: ARABICA COFFEE BEAN\AVENA SATIVA FLOWERING TOP\HOPS\MATRICARIA RECUTITA\PASSIFLORA INCARNATA TOP\POTASSIUM PHOSPHATE, DIBASIC
     Indication: INSOMNIA
     Route: 048

REACTIONS (2)
  - Myocardial infarction [None]
  - Mental disorder [None]
